FAERS Safety Report 7156148-4 (Version None)
Quarter: 2010Q4

REPORT INFORMATION
  Report Type: 
  Country: None (occurrence: None)
  Receive Date: 20101214
  Receipt Date: 20101203
  Transmission Date: 20110411
  Serious: Yes (Hospitalization)
  Sender: FDA-Public Use
  Company Number: JP-NOVOPROD-319111

PATIENT
  Age: 67 Year
  Sex: Female
  Weight: 64 kg

DRUGS (7)
  1. VICTOZA [Suspect]
     Indication: TYPE 2 DIABETES MELLITUS
     Dosage: 0.3 MG, QD
     Route: 058
     Dates: start: 20100911
  2. VICTOZA [Suspect]
     Dosage: 0.9 MG, QD
     Route: 058
     Dates: start: 20101009
  3. VICTOZA [Suspect]
     Dosage: 0.9 MG, QD
     Route: 058
     Dates: start: 20101129
  4. AMARYL [Concomitant]
     Indication: TYPE 2 DIABETES MELLITUS
     Dosage: 0.5-3.0 MG
     Route: 048
     Dates: end: 20101119
  5. RENIVACE [Concomitant]
     Indication: HYPERTENSION
     Dosage: 2.5 MG, QD
     Route: 048
     Dates: end: 20101119
  6. LIPITOR [Concomitant]
     Indication: HYPERTENSION
     Dosage: 10 MG, QD
     Route: 048
     Dates: end: 20101119
  7. GASTER D [Concomitant]
     Indication: GASTRIC ULCER
     Dosage: 40 MG, QD
     Route: 048
     Dates: end: 20101119

REACTIONS (3)
  - CHOLELITHIASIS [None]
  - GALLBLADDER PERFORATION [None]
  - PERITONITIS [None]
